FAERS Safety Report 5892961-9 (Version None)
Quarter: 2008Q3

REPORT INFORMATION
  Report Type: 
  Country: None (occurrence: None)
  Receive Date: 20080922
  Receipt Date: 20080922
  Transmission Date: 20090109
  Serious: Yes (Other)
  Sender: FDA-Public Use
  Company Number: None

PATIENT
  Age: 3 Year
  Sex: Female
  Weight: 12.2471 kg

DRUGS (1)
  1. TAMIFLU [Suspect]
     Indication: INFLUENZA SEROLOGY POSITIVE
     Dosage: 1/2 TEASPOONFUL BY MOUTH 2 X DAILY 5 DAYS PO
     Route: 048
     Dates: start: 20080911, end: 20080915

REACTIONS (11)
  - ABNORMAL BEHAVIOUR [None]
  - AGGRESSION [None]
  - CONVERSION DISORDER [None]
  - CRYING [None]
  - FEAR [None]
  - INCONTINENCE [None]
  - INFLUENZA [None]
  - NASOPHARYNGITIS [None]
  - PYREXIA [None]
  - SCREAMING [None]
  - STRESS [None]
